FAERS Safety Report 6311902-3 (Version None)
Quarter: 2009Q3

REPORT INFORMATION
  Report Type: 
  Country: None (occurrence: None)
  Receive Date: 20090817
  Receipt Date: 20080813
  Transmission Date: 20100115
  Serious: Yes (Hospitalization)
  Sender: FDA-Public Use
  Company Number: US-BRISTOL-MYERS SQUIBB COMPANY-14109409

PATIENT
  Age: 33 Year
  Sex: Female

DRUGS (5)
  1. ABATACEPT [Suspect]
     Indication: CROHN'S DISEASE
     Dosage: 4TH CYCLE COMPLETES ON 01APR08
     Route: 042
     Dates: start: 20080205, end: 20080401
  2. PROMETHAZINE [Concomitant]
     Indication: NAUSEA
     Dates: start: 20080303
  3. PROTONIX [Concomitant]
     Indication: GASTROOESOPHAGEAL REFLUX DISEASE
     Dates: start: 20080227
  4. PEPCID AC [Concomitant]
     Indication: GASTROOESOPHAGEAL REFLUX DISEASE
     Dates: start: 20080227
  5. PEPTO-BISMOL [Concomitant]
     Indication: NAUSEA
     Dates: start: 20080228, end: 20080229

REACTIONS (1)
  - CLOSTRIDIUM DIFFICILE COLITIS [None]
